FAERS Safety Report 9170124 (Version 1)
Quarter: 2013Q1

REPORT INFORMATION
  Report Type: Spontaneous
  Country: US (occurrence: None)
  Receive Date: 20130307
  Receipt Date: 20130307
  Transmission Date: 20140127
  Serious: Yes (Hospitalization, Other)
  Sender: FDA-Public Use
  Company Number: 2013P1002798

PATIENT
  Age: 45 Year
  Sex: Female

DRUGS (1)
  1. DEXAMETHASONE [Suspect]
     Indication: ADDISON^S DISEASE

REACTIONS (6)
  - Asthenia [None]
  - Decreased appetite [None]
  - Otitis externa [None]
  - Diabetic ketoacidosis [None]
  - Hyponatraemia [None]
  - Metabolic acidosis [None]
